FAERS Safety Report 15936047 (Version 2)
Quarter: 2019Q1

REPORT INFORMATION
  Report Type: Report from Study
  Country: NL (occurrence: NL)
  Receive Date: 20190208
  Receipt Date: 20190219
  Transmission Date: 20190417
  Serious: Yes (Hospitalization)
  Sender: FDA-Public Use
  Company Number: NL-ROCHE-2259480

PATIENT
  Age: 59 Year
  Sex: Male
  Weight: 88.1 kg

DRUGS (9)
  1. CYCLOPHOSPHAMIDE. [Suspect]
     Active Substance: CYCLOPHOSPHAMIDE
     Indication: CHRONIC LYMPHOCYTIC LEUKAEMIA
     Dosage: DAY 1-3?LAST DOSE RECEIVED ON 05/JAN/2019 PRIOR TO ONSET OF SERIOUS ADVERSE EVENT: 530 MG
     Route: 042
     Dates: start: 20181206
  2. ACETYLSALICYLIC ACID [Concomitant]
     Active Substance: ASPIRIN
     Route: 048
  3. COTRIMOXAZOLE [Concomitant]
     Active Substance: SULFAMETHOXAZOLE\TRIMETHOPRIM
     Route: 048
     Dates: start: 20181220
  4. METOCLOPRAMIDE. [Concomitant]
     Active Substance: METOCLOPRAMIDE
     Route: 048
     Dates: start: 20181126
  5. VALACYCLOVIR [Concomitant]
     Active Substance: VALACYCLOVIR HYDROCHLORIDE
     Route: 048
     Dates: start: 20181126
  6. ATORVASTATIN [Concomitant]
     Active Substance: ATORVASTATIN
     Route: 048
  7. FLUDARABINE PHOSPHATE. [Suspect]
     Active Substance: FLUDARABINE PHOSPHATE
     Indication: CHRONIC LYMPHOCYTIC LEUKAEMIA
     Dosage: DAY 1-3?LAST DOSE RECEIVED ON 05/JAN/2019 PRIOR TO ONSET OF SERIOUS ADVERSE EVENT: 53 MG
     Route: 042
     Dates: start: 20181206
  8. PENTAMIDINE [Concomitant]
     Active Substance: PENTAMIDINE
     Route: 050
     Dates: start: 20190213
  9. RITUXIMAB. [Suspect]
     Active Substance: RITUXIMAB
     Indication: CHRONIC LYMPHOCYTIC LEUKAEMIA
     Dosage: CYCLE1 DAY 0?CYCLES 2-6: 500 MG/M2, DAY 1?LAST DOSE RECEIVED ON 03/JAN/2019 PRIOR TO ONSET OF SERIOU
     Route: 042
     Dates: start: 20181207

REACTIONS (1)
  - Thrombophlebitis [Not Recovered/Not Resolved]

NARRATIVE: CASE EVENT DATE: 20190128
